FAERS Safety Report 14116194 (Version 2)
Quarter: 2017Q4

REPORT INFORMATION
  Report Type: Spontaneous
  Country: US (occurrence: US)
  Receive Date: 20171023
  Receipt Date: 20171211
  Transmission Date: 20180321
  Serious: No
  Sender: FDA-Public Use
  Company Number: US-ACTELION-A-NJ2017-161252

PATIENT
  Age: 67 Year
  Sex: Female

DRUGS (4)
  1. SILDENAFIL CITRATE. [Concomitant]
     Active Substance: SILDENAFIL CITRATE
     Dosage: UNK
  2. OPSUMIT [Suspect]
     Active Substance: MACITENTAN
     Indication: PULMONARY ARTERIAL HYPERTENSION
     Dosage: 10 MG, QD
     Route: 048
     Dates: start: 20171014
  3. REMODULIN [Concomitant]
     Active Substance: TREPROSTINIL
  4. SIMBRINZA [Concomitant]
     Active Substance: BRIMONIDINE TARTRATE\BRINZOLAMIDE

REACTIONS (3)
  - Somnolence [Recovering/Resolving]
  - Fatigue [Recovering/Resolving]
  - Glaucoma [Not Recovered/Not Resolved]

NARRATIVE: CASE EVENT DATE: 20171014
